FAERS Safety Report 7965554-7 (Version None)
Quarter: 2011Q4

REPORT INFORMATION
  Report Type: 
  Country: None (occurrence: None)
  Receive Date: 20111208
  Receipt Date: 20111129
  Transmission Date: 20120403
  Serious: Yes (Hospitalization)
  Sender: FDA-Public Use
  Company Number: US-BAYER-2010-008384

PATIENT
  Age: 22 Year
  Sex: Female
  Weight: 84 kg

DRUGS (4)
  1. YAZ [Suspect]
     Indication: CONTRACEPTION
     Dosage: UNK
     Dates: start: 20061001, end: 20071201
  2. YAZ [Suspect]
     Indication: ACNE
  3. YASMIN [Suspect]
     Indication: CONTRACEPTION
     Dosage: UNK
     Dates: start: 20050101, end: 20060801
  4. YASMIN [Suspect]
     Indication: ACNE

REACTIONS (8)
  - PAIN [None]
  - INJURY [None]
  - CHOLECYSTITIS [None]
  - EMOTIONAL DISTRESS [None]
  - ABDOMINAL PAIN UPPER [None]
  - ANXIETY [None]
  - CHOLELITHIASIS [None]
  - GALLBLADDER DISORDER [None]
